FAERS Safety Report 7106554-9 (Version None)
Quarter: 2010Q4

REPORT INFORMATION
  Report Type: 
  Country: None (occurrence: None)
  Receive Date: 20101116
  Receipt Date: 20101112
  Transmission Date: 20110411
  Serious: Yes (Life-Threatening)
  Sender: FDA-Public Use
  Company Number: JP-ELI_LILLY_AND_COMPANY-JP201011003263

PATIENT
  Age: 55 Year

DRUGS (2)
  1. GEMZAR [Suspect]
     Indication: ADENOCARCINOMA
     Route: 042
  2. MOBIC [Concomitant]
     Route: 048

REACTIONS (1)
  - HEPATITIS FULMINANT [None]
